FAERS Safety Report 8584654-4 (Version None)
Quarter: 2012Q3

REPORT INFORMATION
  Report Type: 
  Country: None (occurrence: None)
  Receive Date: 20120810
  Receipt Date: 20120731
  Transmission Date: 20120928
  Serious: Yes (Other)
  Sender: FDA-Public Use
  Company Number: US-BAYER-2012-046348

PATIENT
  Age: 18 Year
  Sex: Female

DRUGS (7)
  1. PENICILLIN VK [Concomitant]
     Dosage: 500 MG, UNK
  2. YASMIN [Suspect]
  3. YAZ [Suspect]
  4. OXYCODONE HCL AND ACETAMINOPHEN [Concomitant]
     Dosage: 5-325
  5. ASPIRIN [Concomitant]
     Dosage: UNK
     Dates: start: 20110401
  6. CHLORHEXIDINUM [Concomitant]
     Dosage: 0.12 %, UNK
  7. HYDROCODONE BITARTRATE + ACETAMINOPHEN [Concomitant]
     Dosage: 5/500

REACTIONS (8)
  - ANXIETY [None]
  - DEEP VEIN THROMBOSIS [None]
  - PAIN [None]
  - ANHEDONIA [None]
  - INJURY [None]
  - QUALITY OF LIFE DECREASED [None]
  - EMOTIONAL DISTRESS [None]
  - FEAR [None]
